FAERS Safety Report 6975119-1 (Version None)
Quarter: 2010Q3

REPORT INFORMATION
  Report Type: 
  Country: None (occurrence: None)
  Receive Date: 20100910
  Receipt Date: 20090312
  Transmission Date: 20110219
  Serious: No
  Sender: FDA-Public Use
  Company Number: US-WYE-H08126509

PATIENT
  Sex: Female
  Weight: 89.09 kg

DRUGS (5)
  1. PRISTIQ [Suspect]
     Indication: DEPRESSION
     Route: 048
     Dates: start: 20090203, end: 20090101
  2. SPIRONOLACTONE [Concomitant]
  3. THYROID TAB [Concomitant]
  4. GLUCOPHAGE [Concomitant]
  5. METHOCARBAMOL [Concomitant]

REACTIONS (2)
  - HEADACHE [None]
  - TINNITUS [None]
